FAERS Safety Report 4373563-2 (Version None)
Quarter: 2004Q1

REPORT INFORMATION
  Report Type: 
  Country: None (occurrence: None)
  Receive Date: 20040305
  Receipt Date: 20040129
  Transmission Date: 20041129
  Serious: Yes (Other)
  Sender: FDA-Public Use
  Company Number: 2004UW01611

PATIENT
  Age: 68 Year
  Sex: Male
  Weight: 106.5953 kg

DRUGS (4)
  1. CRESTOR [Suspect]
     Indication: BLOOD CHOLESTEROL INCREASED
     Dosage: 5 MG QD PO
     Route: 048
     Dates: start: 20040101
  2. WARFARIN SODIUM [Concomitant]
  3. VERAPAMIL [Concomitant]
  4. GLUCOTROL [Concomitant]

REACTIONS (1)
  - PAIN IN EXTREMITY [None]
